FAERS Safety Report 13104270 (Version 2)
Quarter: 2017Q1

REPORT INFORMATION
  Report Type: Report from Study
  Country: US (occurrence: US)
  Receive Date: 20170111
  Receipt Date: 20170116
  Transmission Date: 20170428
  Serious: No
  Sender: FDA-Public Use
  Company Number: US-AMGEN-USASL2017002270

PATIENT
  Age: 53 Year
  Sex: Female

DRUGS (1)
  1. ENBREL [Suspect]
     Active Substance: ETANERCEPT
     Indication: RHEUMATOID ARTHRITIS
     Dosage: 50 MG, QWK
     Route: 065
     Dates: start: 201609

REACTIONS (14)
  - Nausea [Recovering/Resolving]
  - Injection site discolouration [Not Recovered/Not Resolved]
  - Injection site pain [Not Recovered/Not Resolved]
  - Injection site bruising [Unknown]
  - Underdose [Unknown]
  - Injection site erythema [Not Recovered/Not Resolved]
  - Abdominal pain lower [Unknown]
  - Wrong technique in product usage process [Unknown]
  - Hyperhidrosis [Recovering/Resolving]
  - Injection site haemorrhage [Unknown]
  - Chills [Recovering/Resolving]
  - Injection site pruritus [Unknown]
  - Injection site reaction [Unknown]
  - Diarrhoea [Unknown]

NARRATIVE: CASE EVENT DATE: 20161229
